FAERS Safety Report 7654309-9 (Version None)
Quarter: 2011Q3

REPORT INFORMATION
  Report Type: 
  Country: None (occurrence: None)
  Receive Date: 20110728
  Receipt Date: 20110712
  Transmission Date: 20111222
  Serious: Yes (Hospitalization)
  Sender: FDA-Public Use
  Company Number: AUR-APL-2011-04353

PATIENT
  Age: 75 Year
  Sex: Female
  Weight: 57 kg

DRUGS (15)
  1. NEXIUM [Concomitant]
  2. ALENDRONATE SODIUM [Concomitant]
  3. ADCAL-D3 (LEKOVIT CA) [Concomitant]
  4. ZOPICLONE (ZOPICLONE) [Concomitant]
  5. DEXAMETHASONE [Concomitant]
  6. LENOGRASTIM (LENOGRASTIM) [Concomitant]
  7. DOCETAXEL [Suspect]
     Indication: BREAST CANCER METASTATIC
     Dosage: (120 MG,3 WK),INTRAVENOUS
     Route: 042
     Dates: start: 20080815, end: 20090106
  8. ESCITALOPRAM [Concomitant]
  9. METOCLOPRAMIDE [Concomitant]
  10. DIFFLAM (BENZYDAMINE HYDROCHLORIDE) [Concomitant]
  11. FLORADIX FORMULA (FLORADIX KRAEUTERBLUT MIT EISEN) [Suspect]
     Indication: ANAEMIA
     Dosage: 10 ML (10 ML,1 IN 1 D)
     Dates: start: 20080101
  12. SIMVASTATIN [Concomitant]
  13. PREDNISOLONE [Concomitant]
  14. CIPROFLOXACIN [Suspect]
     Indication: PROPHYLAXIS
     Dosage: 500 MG (250 MG,2 IN 1 D)
     Dates: start: 20081221, end: 20081227
  15. LOPERAMIDE [Concomitant]

REACTIONS (1)
  - GASTROENTERITIS VIRAL [None]
